FAERS Safety Report 7462591-6 (Version None)
Quarter: 2011Q2

REPORT INFORMATION
  Report Type: 
  Country: None (occurrence: None)
  Receive Date: 20110506
  Receipt Date: 20110504
  Transmission Date: 20111010
  Serious: Yes (Death, Other)
  Sender: FDA-Public Use
  Company Number: VE-PFIZER INC-2011096866

PATIENT
  Age: 63 Year
  Sex: Male

DRUGS (6)
  1. LASIX [Concomitant]
     Dosage: UNK
  2. ATIVAN [Concomitant]
     Dosage: UNK
  3. LIPITOR [Suspect]
     Indication: HYPERCHOLESTEROLAEMIA
     Dosage: UNK
     Route: 048
     Dates: start: 20100901
  4. PLAVIX [Concomitant]
     Dosage: UNK
  5. CARVEDILOL [Concomitant]
     Dosage: UNK
  6. ASPIRIN [Concomitant]
     Dosage: UNK

REACTIONS (3)
  - UPPER LIMB FRACTURE [None]
  - HAEMORRHAGE [None]
  - FALL [None]
